FAERS Safety Report 4380779-8 (Version None)
Quarter: 2004Q2

REPORT INFORMATION
  Report Type: 
  Country: None (occurrence: None)
  Receive Date: 20040616
  Receipt Date: 20040601
  Transmission Date: 20050107
  Serious: Yes (Disabling)
  Sender: FDA-Public Use
  Company Number: JP_040302878

PATIENT
  Age: 66 Year
  Sex: Female

DRUGS (3)
  1. ZYPREXA [Suspect]
     Indication: SCHIZOPHRENIA
     Dosage: 2.5 MG DAY
     Dates: start: 20031211
  2. TOLEDOMIN (MILNACIPRAN HYDROCHLORIDE) [Concomitant]
  3. DEPAS (ETIZOLAM) [Concomitant]

REACTIONS (3)
  - DEPRESSIVE SYMPTOM [None]
  - IDIOPATHIC THROMBOCYTOPENIC PURPURA [None]
  - REFUSAL OF TREATMENT BY PATIENT [None]
